FAERS Safety Report 4724711-3 (Version None)
Quarter: 2005Q3

REPORT INFORMATION
  Report Type: 
  Country: None (occurrence: None)
  Receive Date: 20050720
  Receipt Date: 20050720
  Transmission Date: 20060218
  Serious: Yes (Life-Threatening)
  Sender: FDA-Public Use
  Company Number: None

PATIENT
  Age: 32 Year
  Sex: Female
  Weight: 53.5244 kg

DRUGS (1)
  1. ORTHO EVRA [Suspect]
     Indication: PULMONARY EMBOLISM
     Dosage: 1 PATCH   WEEKLY  TOPICAL
     Route: 061
     Dates: start: 20030720, end: 20030830

REACTIONS (4)
  - CHEST WALL PAIN [None]
  - PAIN [None]
  - PULMONARY EMBOLISM [None]
  - SHOULDER PAIN [None]
